FAERS Safety Report 5959882-4 (Version None)
Quarter: 2008Q4

REPORT INFORMATION
  Report Type: 
  Country: None (occurrence: None)
  Receive Date: 20081110
  Receipt Date: 20080918
  Transmission Date: 20090506
  Serious: No
  Sender: FDA-Public Use
  Company Number: 2008US002127

PATIENT
  Age: 88 Year
  Sex: Male
  Weight: 67.1 kg

DRUGS (11)
  1. LEXISCAN [Suspect]
     Indication: SCAN MYOCARDIAL PERFUSION
     Dosage: 5 ML, OTHER, IV NOS
     Route: 042
     Dates: start: 20080708, end: 20080708
  2. COLCHICINE (COLCHICINE) [Concomitant]
  3. COREG [Concomitant]
  4. HYDRALAZINE (HYDRALAZINE HYDROCHLORIDE) [Concomitant]
  5. IMDUR [Concomitant]
  6. LASIX [Concomitant]
  7. KLOR-CON [Concomitant]
  8. COLACE (DOCUSATE SODIUM) [Concomitant]
  9. SENOKOTXTRA (SENNA ALEXANDRINA) [Concomitant]
  10. PLAVIX [Concomitant]
  11. ASPIRIN [Concomitant]

REACTIONS (2)
  - ARTHRALGIA [None]
  - GASTROINTESTINAL DISORDER [None]
